FAERS Safety Report 17786109 (Version 1)
Quarter: 2020Q2

REPORT INFORMATION
  Report Type: Spontaneous
  Country: DK (occurrence: DK)
  Receive Date: 20200513
  Receipt Date: 20200513
  Transmission Date: 20200714
  Serious: Yes (Hospitalization)
  Sender: FDA-Public Use
  Company Number: DK-BAXTER-2020BAX009488

PATIENT
  Age: 49 Year
  Sex: Female

DRUGS (29)
  1. INNOVAIR [Concomitant]
     Active Substance: BECLOMETHASONE DIPROPIONATE\FORMOTEROL
     Indication: ASTHMA
     Dosage: POTENCY: 100 + 6 MCG/DOSE
     Route: 055
     Dates: start: 20181012
  2. METRONIDAZOL BAXTER VIAFLO [Suspect]
     Active Substance: METRONIDAZOLE
     Indication: PELVIC ABSCESS
     Dosage: UNKNOWN DOSE AND POTENCY
     Route: 042
     Dates: start: 202002
  3. PREDNISOLONE. [Concomitant]
     Active Substance: PREDNISOLONE
     Indication: LUNG DISORDER
     Dosage: POTENCY: VARYING DOSE VARYING
     Route: 048
     Dates: start: 20200228
  4. AVAMYS [Concomitant]
     Active Substance: FLUTICASONE FUROATE
     Indication: RHINITIS ALLERGIC
     Dosage: POTENCY: 27.5 MCG DOSE: IN EACH NOSTRIL
     Route: 045
     Dates: start: 20140403
  5. SINGULAIR [Concomitant]
     Active Substance: MONTELUKAST SODIUM
     Indication: ASTHMA
     Dosage: POTENCY: 10 MG
     Route: 048
     Dates: start: 20141003
  6. MOXALOLE [Concomitant]
     Active Substance: POLYETHYLENE GLYCOL 3350\POTASSIUM CHLORIDE\SODIUM BICARBONATE\SODIUM CHLORIDE
     Indication: CONSTIPATION
     Dosage: POTENCY: UNKNOWN DOSAGE: 2-2.5 LETTERS DAILY, PRO NE RATA.
     Route: 048
     Dates: start: 20191203
  7. EMADINE [Concomitant]
     Active Substance: EMEDASTINE DIFUMARATE
     Indication: CONJUNCTIVITIS ALLERGIC
     Dosage: POTENCY: 0.5 MG/ML
     Route: 050
     Dates: start: 20140311
  8. BENADRYL [Concomitant]
     Active Substance: DIPHENHYDRAMINE HYDROCHLORIDE
     Indication: SEASONAL ALLERGY
     Dosage: POTENCY: 8 MG
     Route: 048
  9. PANTOPRAZOLE ANDQUOT;2CARE4ANDQUOT; [Concomitant]
     Indication: GASTRIC ULCER
     Dosage: POTENCY: 20 MG
     Route: 048
     Dates: start: 20170202
  10. BIOCLAVID [Concomitant]
     Active Substance: AMOXICILLIN\CLAVULANIC ACID
     Indication: ABSCESS
     Dosage: POTENCY: 500 MG + 125 MG
     Route: 048
     Dates: start: 20191117, end: 20200316
  11. SPIRIVA RESPIMAT [Concomitant]
     Active Substance: TIOTROPIUM BROMIDE
     Indication: ASTHMA
     Dosage: POTENCY: 2.5 MICROGRAM
     Route: 055
     Dates: start: 20170821
  12. CIRCADIN [Concomitant]
     Active Substance: MELATONIN
     Indication: INSOMNIA
     Dosage: POTENCY: 2 MG
     Route: 048
     Dates: start: 20190109
  13. VENTOLIN [Concomitant]
     Active Substance: ALBUTEROL SULFATE
     Indication: ASTHMA
     Dosage: POTENCY: 1 MG/ML DOSAGE: 1 AMPOULE PRO NE RATA, MAXIMUM OF 4 TIMES DAILY.
     Route: 055
     Dates: start: 20200316
  14. IBUPROFEN. [Concomitant]
     Active Substance: IBUPROFEN
     Indication: ANALGESIC THERAPY
     Dosage: POTENCY: 400 MG DOSAGE: X 1 PRO NE RATA, MAXIMUM 3 TIMES DAILY
     Route: 048
     Dates: start: 20140109
  15. METRONIDAZOLE ANDQUOT;DAKANDQUOT; [Suspect]
     Active Substance: METRONIDAZOLE
     Indication: PELVIC ABSCESS
     Dosage: DOSE INCREASED ON 8FEB2020 TO 1000 MG X 3. POTENCY: 500 MG
     Route: 048
     Dates: start: 20191117, end: 20200316
  16. BRICANYL [Concomitant]
     Active Substance: TERBUTALINE SULFATE
     Indication: ASTHMA
     Dosage: POTENCY: 0.5 MG/DOSE DOSE: PURSUANT TO AGREEMENT
     Route: 055
     Dates: start: 20140109
  17. PROVERA [Concomitant]
     Active Substance: MEDROXYPROGESTERONE ACETATE
     Indication: ENDOMETRIOSIS
     Dosage: POTENCY: 5 MG
     Route: 048
     Dates: start: 20191210
  18. REDAP [Concomitant]
     Indication: ACNE
     Dosage: POTENCY: 1 MG/G
     Route: 003
     Dates: start: 20171003
  19. LOSARTAN ANDQUOT;BLUEFISHANDQUOT; [Concomitant]
     Indication: HYPERTENSION
     Dosage: POTENCY: 100 MG
     Route: 048
  20. DAIVOBET [Concomitant]
     Active Substance: BETAMETHASONE DIPROPIONATE\CALCIPOTRIENE
     Indication: PSORIASIS
     Dosage: POTENCY: 50 + 500 MICROGRAM/GRAM
     Route: 003
     Dates: start: 20131202
  21. ATORVASTATIN ANDQUOT;ACTAVISANDQUOT; [Concomitant]
     Indication: CARDIOVASCULAR EVENT PROPHYLAXIS
     Dosage: POTENCY: 10 MG
     Route: 048
     Dates: start: 20170530
  22. FINACEA [Concomitant]
     Active Substance: AZELAIC ACID
     Indication: ACNE
     Dosage: POTENCY: 15 %
     Route: 003
     Dates: start: 20171003
  23. PROTOPIC [Concomitant]
     Active Substance: TACROLIMUS
     Indication: ECZEMA
     Dosage: DOSE: SMEARED ON 1-2 TIMES WEEKLY POTENCY: 0.1%
     Route: 003
     Dates: start: 20141203
  24. ELOCON [Concomitant]
     Active Substance: MOMETASONE FUROATE
     Indication: PSORIASIS
     Dosage: POTENCY: 0.1 % DOSE: ONCE DAILY FOR 3 WEEKS, THEN 2-3 TIMES WEEKLY AFTERWARDS
     Route: 003
     Dates: start: 20170524
  25. FEXOFENADINE [Concomitant]
     Active Substance: FEXOFENADINE HYDROCHLORIDE
     Indication: URTICARIA
     Dosage: POTENCY: 180 MG
     Route: 048
     Dates: start: 20200317
  26. LOCOID [Concomitant]
     Active Substance: HYDROCORTISONE BUTYRATE
     Indication: PSORIASIS
     Dosage: POTENCY: 0.1% DOSING: PURSUANT TO WRITTEN INSTRUCTIONS.
     Route: 003
     Dates: start: 20111221
  27. ALVESCO [Concomitant]
     Active Substance: CICLESONIDE
     Indication: ASTHMA
     Dosage: POTENCY: 80 MICROGRAM/DOSE
     Route: 055
     Dates: start: 20170821
  28. PANODIL [Concomitant]
     Active Substance: ACETAMINOPHEN
     Indication: ANALGESIC THERAPY
     Dosage: POTENCY: 500 MG DOSAGE: 2 TABLETS PRO NE RATA, MAXIMUM 4 TIMES DAILY.
     Route: 048
     Dates: start: 20171219
  29. MOVICOL JUNIOR NEUTRAL [Concomitant]
     Indication: CONSTIPATION
     Dosage: POTENCY: UNKNOWN DOSAGE: 2-2.5 LETTERS PRO NE RATA.
     Route: 048
     Dates: start: 20191203

REACTIONS (4)
  - Dizziness [Not Recovered/Not Resolved]
  - Nausea [Unknown]
  - Hyperintensity in brain deep nuclei [Unknown]
  - Vomiting [Unknown]

NARRATIVE: CASE EVENT DATE: 2020
